FAERS Safety Report 22035866 (Version 1)
Quarter: 2023Q1

REPORT INFORMATION
  Report Type: Spontaneous
  Country: US (occurrence: US)
  Receive Date: 20230224
  Receipt Date: 20230224
  Transmission Date: 20230417
  Serious: Yes (Life-Threatening)
  Sender: FDA-Public Use
  Company Number: US-002147023-NVSC2023US042628

PATIENT
  Sex: Female

DRUGS (21)
  1. ZOFRAN [Suspect]
     Active Substance: ONDANSETRON HYDROCHLORIDE
     Indication: Product used for unknown indication
     Dosage: UNK
     Route: 065
  2. ZOFRAN [Suspect]
     Active Substance: ONDANSETRON HYDROCHLORIDE
     Dosage: 8 MG, QD (ADDITIONAL INFORMATION FOR OTHER MEDICINES ZOFRAN: WAS TAKING PROBABLY AT LEAST 3 OR 4 YEA
     Route: 065
  3. SYNTHROID [Concomitant]
     Active Substance: LEVOTHYROXINE SODIUM
     Indication: Product used for unknown indication
     Dosage: 175 UG, QD (ADDITIONAL INFORMATION FOR OTHER MEDICINES SYNTHROID: DOES NOT HAVE A THYROID, HAS TO TA
     Route: 065
  4. METFORMIN [Concomitant]
     Active Substance: METFORMIN HYDROCHLORIDE
     Indication: Diabetes mellitus
     Dosage: 2000 MG, QD (ADDITIONAL INFORMATION FOR OTHER MEDICINES METFORMIN: HAS BEEN TAKING PROBABLY ABOUT 10
     Route: 065
  5. HUMALOG [Concomitant]
     Active Substance: INSULIN LISPRO
     Indication: Diabetes mellitus
     Dosage: UNK (DOSE VARIES THROUGH DAY (ADDITIONAL INFORMATION FOR OTHER MEDICINES HUMALOG: BEEN TAKING PROBAB
     Route: 065
  6. LEVEMIR [Concomitant]
     Active Substance: INSULIN DETEMIR
     Indication: Product used for unknown indication
     Dosage: UNK, QD (32 UNITS LONG ACTING (ADDITIONAL INFORMATION FOR OTHER MEDICINES LEVEMIR: HAS BEEN TAKING F
     Route: 065
  7. PREGABALIN [Concomitant]
     Active Substance: PREGABALIN
     Indication: Joint injury
     Dosage: 300 MG, QD (ADDITIONAL INFORMATION FOR OTHER MEDICINES PREGABALIN: HAS BEEN TAKING A COUPLE YEARS, N
     Route: 065
  8. COLCHICINE [Concomitant]
     Active Substance: COLCHICINE
     Indication: Inflammation
     Dosage: 6 MG (IN MORNING (ADDITIONAL INFORMATION FOR OTHER MEDICINES COLCHICINE: HAD THORACIC SURGERY, AFTER
     Route: 065
  9. BRILINTA [Concomitant]
     Active Substance: TICAGRELOR
     Indication: Anticoagulant therapy
     Dosage: UNK
     Route: 065
  10. ASPIRIN [Concomitant]
     Active Substance: ASPIRIN
     Indication: Cardiac disorder
     Dosage: 81 MG, QD (ADDITIONAL INFORMATION FOR OTHER MEDICINES ASPIRIN: BEEN FOREVER 20 YEARS)
     Route: 065
  11. CARVEDILOL [Concomitant]
     Active Substance: CARVEDILOL
     Indication: Cardiac disorder
     Dosage: 50 MG, QD (ADDITIONAL INFORMATION FOR OTHER MEDICINES CARVEDILOL: HAS BEEN TAKING PROBABLY ABOUT A Y
     Route: 065
  12. CARVEDILOL [Concomitant]
     Active Substance: CARVEDILOL
     Indication: Blood pressure measurement
  13. ENALAPRIL [Concomitant]
     Active Substance: ENALAPRIL
     Indication: Blood pressure measurement
     Dosage: 30 MG, QD (ADDITIONAL INFORMATION FOR OTHER MEDICINES ENALAPRIL: HAS BEEN TAKING PROBABLY DIFFERENT
     Route: 065
  14. ATORVASTATIN [Concomitant]
     Active Substance: ATORVASTATIN
     Indication: Blood cholesterol
     Dosage: 80 MG, QD (ADDITIONAL INFORMATION FOR OTHER MEDICINES ATROVASTATIN: DOCTOR RAISED A YEAR AGO, PROBAB
     Route: 065
  15. VASCEPA [Concomitant]
     Active Substance: ICOSAPENT ETHYL
     Indication: Blood cholesterol
     Dosage: 4 G, QD (ADDITIONAL INFORMATION FOR OTHER MEDICINES VASCEPA: HAS BEEN TAKING PROBABLY 2 YEARS)
     Route: 065
  16. XANAX [Concomitant]
     Active Substance: ALPRAZOLAM
     Indication: Cerebrovascular accident
     Dosage: 2 MG, QD (ADDITIONAL INFORMATION FOR OTHER MEDICINES XANAX: GUESS SHE HAS BEEN ON IT ABOUT 23 YEARS,
     Route: 065
  17. FLUOXETINE [Concomitant]
     Active Substance: FLUOXETINE HYDROCHLORIDE
     Indication: Mood swings
     Dosage: 40 MG, QD (WHEN HAD THYROID REMOVED IT AFFECTED EVERYTHING, STARTED 5 YEARS AGO WAS INCREASED FROM 2
     Route: 065
  18. PANTOPRAZOLE [Concomitant]
     Active Substance: PANTOPRAZOLE
     Indication: Gout
     Dosage: 40 MG (IN MORNING)
     Route: 065
  19. COLACE [Concomitant]
     Active Substance: DOCUSATE SODIUM
     Indication: Constipation
     Dosage: 200 MG, QD (ADDITIONAL INFORMATION FOR OTHER MEDICINES COLACE: AFTER TAKING ALL THESE MEDICINES, SOM
     Route: 065
  20. VITAMIN D3 [Concomitant]
     Active Substance: CHOLECALCIFEROL
     Indication: Product used for unknown indication
     Dosage: 1000 MG, QD (ADDITIONAL INFORMATION FOR OTHER MEDICINES VITAMIN D3 ENDOCRINOLOGIST PUT HER ON IT A F
     Route: 065
  21. TYLENOL [Concomitant]
     Active Substance: ACETAMINOPHEN
     Indication: Product used for unknown indication
     Dosage: UNK (USUALLY NO MORE THAN 1,00 MG A DAY, 2 TABLET AT A TIME, ALMOST EVERY DAY)
     Route: 065

REACTIONS (1)
  - Pleural effusion [Unknown]
